FAERS Safety Report 23516835 (Version 1)
Quarter: 2024Q1

REPORT INFORMATION
  Report Type: Spontaneous
  Country: AU (occurrence: AU)
  Receive Date: 20240213
  Receipt Date: 20240213
  Transmission Date: 20240410
  Serious: Yes (Hospitalization)
  Sender: FDA-Public Use
  Company Number: AU-MYLANLABS-2024M1013724

PATIENT
  Age: 70 Year
  Sex: Female

DRUGS (7)
  1. VALACYCLOVIR HYDROCHLORIDE [Suspect]
     Active Substance: VALACYCLOVIR HYDROCHLORIDE
     Indication: Varicella zoster virus infection
     Dosage: 1 GRAM, TID, THREE TIMES DAILY
     Route: 048
  2. FLUCLOXACILLIN [Concomitant]
     Active Substance: FLUCLOXACILLIN
     Indication: Acute kidney injury
     Dosage: UNK
     Route: 065
  3. FLUCLOXACILLIN [Concomitant]
     Active Substance: FLUCLOXACILLIN
     Indication: Chronic kidney disease
  4. GENTAMICIN [Concomitant]
     Active Substance: GENTAMICIN
     Indication: Acute kidney injury
     Dosage: UNK
     Route: 065
  5. GENTAMICIN [Concomitant]
     Active Substance: GENTAMICIN
     Indication: Chronic kidney disease
  6. ACYCLOVIR [Concomitant]
     Active Substance: ACYCLOVIR
     Indication: Acute kidney injury
     Dosage: 285 MILLIGRAM, A SINGLE RENALLY ADJUSTED DOSE
     Route: 042
  7. ACYCLOVIR [Concomitant]
     Active Substance: ACYCLOVIR
     Indication: Chronic kidney disease

REACTIONS (1)
  - Neurotoxicity [Recovered/Resolved]
